FAERS Safety Report 19154800 (Version 1)
Quarter: 2021Q2

REPORT INFORMATION
  Report Type: Report from Study
  Country: GB (occurrence: GB)
  Receive Date: 20210419
  Receipt Date: 20210419
  Transmission Date: 20210717
  Serious: Yes (Other)
  Sender: FDA-Public Use
  Company Number: GB-PFIZER INC-2021421552

PATIENT
  Age: 52 Year
  Sex: Male

DRUGS (7)
  1. BLEOMYCIN [Suspect]
     Active Substance: BLEOMYCIN SULFATE
     Indication: NON-HODGKIN^S LYMPHOMA
     Dosage: 10 MG, ON DAY 1, REPEATED EVERY 21 DAYS
     Route: 042
  2. DOXORUBICIN HCL [Suspect]
     Active Substance: DOXORUBICIN HYDROCHLORIDE
     Indication: NON-HODGKIN^S LYMPHOMA
     Dosage: 40 MG/M2, ON DAY 1, REPEATED EVERY 21 DAYS
     Route: 042
  3. CALCIUM FOLINATE [Suspect]
     Active Substance: LEUCOVORIN CALCIUM
     Indication: NON-HODGKIN^S LYMPHOMA
     Dosage: ON DAY 16, REPEATED EVERY 21 DAYS
  4. PREDNISOLONE. [Suspect]
     Active Substance: PREDNISOLONE
     Indication: NON-HODGKIN^S LYMPHOMA
     Dosage: 40 MG, ON DAYS 1?5, REPEATED EVERY 21 DAYS
     Route: 048
  5. VINCRISTINE SULFATE. [Suspect]
     Active Substance: VINCRISTINE SULFATE
     Indication: NON-HODGKIN^S LYMPHOMA
     Dosage: 2 MG, ON DAY 1, REPEATED EVERY 21 DAYS
     Route: 042
  6. CYCLOPHOSPHAMIDE. [Suspect]
     Active Substance: CYCLOPHOSPHAMIDE
     Indication: NON-HODGKIN^S LYMPHOMA
     Dosage: 750 MG/M2, ON DAY 1, REPEATED EVERY 21 DAYS
     Route: 042
  7. METHOTREXATE SODIUM. [Suspect]
     Active Substance: METHOTREXATE SODIUM
     Indication: NON-HODGKIN^S LYMPHOMA
     Dosage: 200 MG/M2, ON DAY 15, REPEATED EVERY 21 DAYS
     Route: 042

REACTIONS (1)
  - Deep vein thrombosis [Recovered/Resolved]
